FAERS Safety Report 6818627-6 (Version None)
Quarter: 2010Q3

REPORT INFORMATION
  Report Type: 
  Country: None (occurrence: None)
  Receive Date: 20100706
  Receipt Date: 20081117
  Transmission Date: 20110219
  Serious: No
  Sender: FDA-Public Use
  Company Number: US-PFIZER INC-2008098441

PATIENT
  Sex: Female

DRUGS (1)
  1. ZITHROMAX [Suspect]
     Indication: PROPHYLAXIS
     Dates: start: 20081107, end: 20081111

REACTIONS (3)
  - GINGIVAL ERYTHEMA [None]
  - GINGIVAL HYPERPIGMENTATION [None]
  - GINGIVAL SWELLING [None]
